FAERS Safety Report 7550183-X (Version None)
Quarter: 2011Q2

REPORT INFORMATION
  Report Type: 
  Country: None (occurrence: None)
  Receive Date: 20110615
  Receipt Date: 20110531
  Transmission Date: 20111010
  Serious: Yes (Other)
  Sender: FDA-Public Use
  Company Number: FR-WATSON-2011-08172

PATIENT
  Age: 38 Year
  Sex: Female

DRUGS (1)
  1. PREDNISOLONE [Suspect]
     Indication: RADIATION NECROSIS
     Dosage: 1 MG/KG, UNK

REACTIONS (4)
  - DRUG INEFFECTIVE [None]
  - WEIGHT INCREASED [None]
  - DIABETES MELLITUS [None]
  - MYOPATHY [None]
